FAERS Safety Report 23857337 (Version 1)
Quarter: 2024Q2

REPORT INFORMATION
  Report Type: Spontaneous
  Country: US (occurrence: None)
  Receive Date: 20240514
  Receipt Date: 20240514
  Transmission Date: 20240715
  Serious: Yes (Hospitalization)
  Sender: FDA-Public Use
  Company Number: None

PATIENT
  Sex: Male

DRUGS (1)
  1. AMLODIPINE BESYLATE AND BENAZEPRIL HYDROCHLORIDE [Suspect]
     Active Substance: AMLODIPINE BESYLATE\BENAZEPRIL HYDROCHLORIDE
     Indication: Hypertension
     Dosage: OTHER FREQUENCY : IN THE MORNING;?: TAKE 1 CAPSULE BY MOUTH IN THE MORNING FOR BLOOD PRESSURE ?
     Route: 048
     Dates: start: 20240206, end: 20240207

REACTIONS (1)
  - Angioedema [None]

NARRATIVE: CASE EVENT DATE: 20240207
